FAERS Safety Report 5066555-1 (Version None)
Quarter: 2006Q3

REPORT INFORMATION
  Report Type: 
  Country: None (occurrence: None)
  Receive Date: 20060801
  Receipt Date: 20060227
  Transmission Date: 20061208
  Serious: Yes (Hospitalization)
  Sender: FDA-Public Use
  Company Number: US-BAYER-200611158BWH

PATIENT
  Age: 74 Year
  Sex: Female
  Weight: 64 kg

DRUGS (17)
  1. NEXAVAR [Suspect]
     Indication: RENAL CELL CARCINOMA STAGE UNSPECIFIED
     Dosage: TOTAL DAILY DOSE: 800 MG  UNIT DOSE: 200 MG
     Route: 050
     Dates: start: 20060202, end: 20060505
  2. NEXAVAR [Suspect]
     Dosage: TOTAL DAILY DOSE: 200 MG  UNIT DOSE: 200 MG
     Route: 050
     Dates: start: 20060523
  3. DELTASONE [Concomitant]
     Dosage: TOTAL DAILY DOSE: 5 MG
  4. LOTENSIN [Concomitant]
     Dosage: TOTAL DAILY DOSE: 20 MG
  5. LOPRESSOR [Concomitant]
     Dosage: TOTAL DAILY DOSE: 12.5 MG
  6. SYNTHROID [Concomitant]
     Dosage: TOTAL DAILY DOSE: 75 ?G
  7. MIACALCIN [Concomitant]
  8. FERROUS SULFATE TAB [Concomitant]
     Dosage: TOTAL DAILY DOSE: 7.5 MG
  9. ROBINUL FORTE [Concomitant]
     Dosage: TOTAL DAILY DOSE: 2 MG
  10. DUKE'S MOUTHWASH [Concomitant]
  11. CALCIUM GLUCONATE [Concomitant]
     Dosage: TOTAL DAILY DOSE: 500 MG
  12. ROBITUSSIN (NOS) [Concomitant]
  13. CHILDREN'S TYLENOL [Concomitant]
  14. COLACE [Concomitant]
  15. BENEFIBER [Concomitant]
  16. BACLOFEN [Concomitant]
  17. MOM [Concomitant]

REACTIONS (7)
  - ALOPECIA [None]
  - DIARRHOEA [None]
  - FAECALOMA [None]
  - NAUSEA [None]
  - ORAL PAIN [None]
  - SKIN EXFOLIATION [None]
  - VOMITING [None]
